FAERS Safety Report 5482148-6 (Version None)
Quarter: 2007Q4

REPORT INFORMATION
  Report Type: 
  Country: None (occurrence: None)
  Receive Date: 20071011
  Receipt Date: 20070928
  Transmission Date: 20080405
  Serious: Yes (Death)
  Sender: FDA-Public Use
  Company Number: US-JNJFOC-20071001789

PATIENT
  Age: 4 Year
  Sex: Female

DRUGS (2)
  1. CHILDREN'S TYLENOL FLU [Suspect]
     Indication: INFLUENZA LIKE ILLNESS
     Dosage: UNKNOWN
     Route: 048
  2. VICKS 44 [Suspect]
     Indication: INFLUENZA LIKE ILLNESS
     Dosage: UNKNOWN
     Route: 048

REACTIONS (8)
  - ADRENAL DISORDER [None]
  - BRONCHITIS [None]
  - BRONCHOPNEUMONIA [None]
  - COMA [None]
  - DRUG TOXICITY [None]
  - HEPATIC CONGESTION [None]
  - JOINT STIFFNESS [None]
  - PULMONARY OEDEMA [None]
